FAERS Safety Report 10274363 (Version 3)
Quarter: 2014Q3

REPORT INFORMATION
  Report Type: Spontaneous
  Country: US (occurrence: US)
  Receive Date: 20140702
  Receipt Date: 20140730
  Transmission Date: 20150326
  Serious: No
  Sender: FDA-Public Use
  Company Number: US-TEVA-492330USA

PATIENT
  Age: 37 Year
  Sex: Female
  Weight: 136.2 kg

DRUGS (7)
  1. VITAMINS [Concomitant]
     Active Substance: VITAMINS
     Indication: SUPPLEMENTATION THERAPY
  2. FISH OIL [Concomitant]
     Active Substance: FISH OIL
     Indication: SUPPLEMENTATION THERAPY
  3. BAYER ASPIRIN [Concomitant]
     Active Substance: ASPIRIN
     Indication: ARTHRITIS
  4. TAKE ACTION [Suspect]
     Active Substance: LEVONORGESTREL
     Indication: MENSTRUATION IRREGULAR
     Dosage: 1.5 MILLIGRAM DAILY;
     Route: 048
     Dates: start: 20140529, end: 20140529
  5. PROAIR HFA [Concomitant]
     Active Substance: ALBUTEROL SULFATE
     Indication: ASTHMA
  6. ALBUTEROL. [Concomitant]
     Active Substance: ALBUTEROL
     Indication: ASTHMA
  7. DYAZIDE [Concomitant]
     Active Substance: HYDROCHLOROTHIAZIDE\TRIAMTERENE
     Indication: HYPERTENSION

REACTIONS (1)
  - Menstruation delayed [Recovered/Resolved]

NARRATIVE: CASE EVENT DATE: 20140618
